FAERS Safety Report 8470331-7 (Version None)
Quarter: 2012Q2

REPORT INFORMATION
  Report Type: 
  Country: None (occurrence: None)
  Receive Date: 20120627
  Receipt Date: 20120621
  Transmission Date: 20120825
  Serious: No
  Sender: FDA-Public Use
  Company Number: US-PFIZER INC-2012150070

PATIENT
  Sex: Male

DRUGS (1)
  1. IBUPROFEN (ADVIL) [Suspect]
     Dosage: UNK

REACTIONS (6)
  - NASAL CONGESTION [None]
  - RASH [None]
  - LACRIMATION INCREASED [None]
  - DYSPNOEA [None]
  - PRURITUS [None]
  - RHINORRHOEA [None]
